FAERS Safety Report 10628983 (Version 2)
Quarter: 2015Q1

REPORT INFORMATION
  Report Type: Spontaneous
  Country: US (occurrence: US)
  Receive Date: 20141205
  Receipt Date: 20150102
  Transmission Date: 20150720
  Serious: Yes (Other)
  Sender: FDA-Public Use
  Company Number: US-BRISTOL-MYERS SQUIBB COMPANY-21525928

PATIENT
  Sex: Female
  Weight: 93.5 kg

DRUGS (6)
  1. FERROUS GLUCONATE [Concomitant]
     Active Substance: FERROUS GLUCONATE
  2. PAROXETINE [Concomitant]
     Active Substance: PAROXETINE\PAROXETINE HYDROCHLORIDE
  3. COUMADIN [Suspect]
     Active Substance: WARFARIN SODIUM
     Indication: CAVERNOUS SINUS THROMBOSIS
     Dosage: 5 MG, QD
     Route: 048
     Dates: start: 2010
  4. VALTREX [Concomitant]
     Active Substance: VALACYCLOVIR HYDROCHLORIDE
  5. LAMICTAL [Concomitant]
     Active Substance: LAMOTRIGINE
  6. OMEPRAZOL E [Concomitant]
     Active Substance: OMEPRAZOLE

REACTIONS (5)
  - Rectal haemorrhage [Unknown]
  - Vaginal haemorrhage [Unknown]
  - International normalised ratio increased [Unknown]
  - Epistaxis [Unknown]
  - Mouth haemorrhage [Unknown]
